FAERS Safety Report 24216080 (Version 1)
Quarter: 2024Q3

REPORT INFORMATION
  Report Type: Spontaneous
  Country: GB (occurrence: GB)
  Receive Date: 20240816
  Receipt Date: 20240816
  Transmission Date: 20241016
  Serious: Yes (Other)
  Sender: AUROBINDO
  Company Number: GB-MHRA-MED-202408041722466200-YRPCJ

PATIENT
  Age: 75 Year
  Sex: Female
  Weight: 78 kg

DRUGS (3)
  1. CIPROFLOXACIN [Suspect]
     Active Substance: CIPROFLOXACIN
     Indication: Urinary tract infection
     Dosage: 500 MILLIGRAM, TWO TIMES A DAY (ON A CRUISE SHIP HOSPITAL)
     Route: 065
     Dates: start: 20240716, end: 20240723
  2. LISINOPRIL [Concomitant]
     Active Substance: LISINOPRIL
     Indication: Adverse drug reaction
     Dosage: UNK
     Route: 065
     Dates: start: 19960615
  3. BENDROFLUMETHIAZIDE [Concomitant]
     Active Substance: BENDROFLUMETHIAZIDE
     Indication: Labile blood pressure
     Dosage: UNK
     Route: 065
     Dates: start: 19960615

REACTIONS (2)
  - Tendonitis [Recovering/Resolving]
  - Medication error [Unknown]

NARRATIVE: CASE EVENT DATE: 20240723
